FAERS Safety Report 14159968 (Version 7)
Quarter: 2018Q2

REPORT INFORMATION
  Report Type: Spontaneous
  Country: US (occurrence: US)
  Receive Date: 20171106
  Receipt Date: 20180508
  Transmission Date: 20180711
  Serious: Yes (Other)
  Sender: FDA-Public Use
  Company Number: US-PFIZER INC-2017475946

PATIENT
  Age: 79 Year
  Sex: Female
  Weight: 67.59 kg

DRUGS (1)
  1. IBRANCE [Suspect]
     Active Substance: PALBOCICLIB
     Indication: BREAST CANCER STAGE IV
     Dosage: 125 MG, CYCLIC (TAKE FOR 21 DAYS AND OFF FOR A WEEK)
     Route: 048
     Dates: start: 20171024

REACTIONS (10)
  - Constipation [Unknown]
  - Dyspnoea [Unknown]
  - Cough [Recovered/Resolved]
  - Drug dose omission [Unknown]
  - Pulmonary oedema [Unknown]
  - Fatigue [Unknown]
  - Feeling abnormal [Unknown]
  - Diarrhoea [Unknown]
  - Lacrimation increased [Unknown]
  - Asthenia [Unknown]

NARRATIVE: CASE EVENT DATE: 201711
